FAERS Safety Report 9364159 (Version 1)
Quarter: 2013Q2

REPORT INFORMATION
  Report Type: Spontaneous
  Country: US (occurrence: None)
  Receive Date: 20130619
  Receipt Date: 20130619
  Transmission Date: 20140414
  Serious: Yes (Other)
  Sender: FDA-Public Use
  Company Number: 2013SA059357

PATIENT
  Age: 60 Year
  Sex: Female

DRUGS (1)
  1. ICY HOT [Suspect]
     Indication: ARTHRITIS
     Dates: start: 2013

REACTIONS (3)
  - Blister [None]
  - Skin discolouration [None]
  - Burning sensation [None]
